FAERS Safety Report 6309384-0 (Version None)
Quarter: 2009Q3

REPORT INFORMATION
  Report Type: 
  Country: None (occurrence: None)
  Receive Date: 20090811
  Receipt Date: 20090521
  Transmission Date: 20100115
  Serious: No
  Sender: FDA-Public Use
  Company Number: 1000006415

PATIENT
  Age: 39 Year
  Sex: Female

DRUGS (4)
  1. SAVELLA [Suspect]
     Indication: FIBROMYALGIA
     Dosage: 12.5 MG (12.5 MG,1 IN 1 D),ORAL; 25 MG (12.5 MG, 2 IN 1 D),ORAL; 50 MG (25 MG, 2 IN 1 D),ORAL
     Route: 048
     Dates: start: 20090511, end: 20090511
  2. SAVELLA [Suspect]
     Indication: FIBROMYALGIA
     Dosage: 12.5 MG (12.5 MG,1 IN 1 D),ORAL; 25 MG (12.5 MG, 2 IN 1 D),ORAL; 50 MG (25 MG, 2 IN 1 D),ORAL
     Route: 048
     Dates: start: 20090512, end: 20090513
  3. SAVELLA [Suspect]
     Indication: FIBROMYALGIA
     Dosage: 12.5 MG (12.5 MG,1 IN 1 D),ORAL; 25 MG (12.5 MG, 2 IN 1 D),ORAL; 50 MG (25 MG, 2 IN 1 D),ORAL
     Route: 048
     Dates: start: 20090514, end: 20090517
  4. SAVELLA [Suspect]
     Indication: FIBROMYALGIA
     Dosage: 100 MG (50 MG, 2 IN 1 D), ORAL
     Route: 048
     Dates: start: 20090518, end: 20090518

REACTIONS (1)
  - RENAL PAIN [None]
